FAERS Safety Report 4586081-3 (Version None)
Quarter: 2005Q1

REPORT INFORMATION
  Report Type: 
  Country: None (occurrence: None)
  Receive Date: 20050125
  Receipt Date: 20040908
  Transmission Date: 20050727
  Serious: No
  Sender: FDA-Public Use
  Company Number: USA040977736

PATIENT
  Age: 76 Year
  Sex: Male

DRUGS (7)
  1. FORTEO [Suspect]
     Indication: OSTEOPOROSIS
     Dosage: 20 UG/1 DAY
     Dates: start: 20040701
  2. HYDROCHLOROTHIAZIDE [Concomitant]
  3. REGLAN [Concomitant]
  4. ZANTAC [Concomitant]
  5. TYLENOL [Concomitant]
  6. CALCIUM GLUCONATE [Concomitant]
  7. CELEBREX [Concomitant]

REACTIONS (3)
  - PAIN IN EXTREMITY [None]
  - RENAL PAIN [None]
  - URINE ODOUR ABNORMAL [None]
